FAERS Safety Report 12427245 (Version 1)
Quarter: 2016Q2

REPORT INFORMATION
  Report Type: Spontaneous
  Country: US (occurrence: US)
  Receive Date: 20160602
  Receipt Date: 20160602
  Transmission Date: 20160815
  Serious: No
  Sender: FDA-Public Use
  Company Number: US-ALKEM-001007

PATIENT
  Sex: Female

DRUGS (1)
  1. AMLODIPINE [Suspect]
     Active Substance: AMLODIPINE BESYLATE
     Indication: PRODUCT USED FOR UNKNOWN INDICATION
     Dosage: PILLS?STRENGTH: 5 MG

REACTIONS (7)
  - Rash [Unknown]
  - Foreign body [Unknown]
  - Dyspnoea [Unknown]
  - Product substitution issue [Unknown]
  - Swollen tongue [Unknown]
  - Dysphagia [Unknown]
  - Hypoaesthesia [Unknown]
